FAERS Safety Report 6036474-2 (Version None)
Quarter: 2009Q1

REPORT INFORMATION
  Report Type: 
  Country: None (occurrence: None)
  Receive Date: 20090112
  Receipt Date: 20090102
  Transmission Date: 20090719
  Serious: Yes (Life-Threatening)
  Sender: FDA-Public Use
  Company Number: TIF2009A00002

PATIENT
  Age: 65 Year
  Sex: Male

DRUGS (1)
  1. COMPETACT (PIOGLITAZONE HYDROCHLORIDE, METFORMIN HYDROCHLORIDE) [Suspect]
     Indication: DIABETES MELLITUS
     Dosage: (2 IN 1 D), ORAL
     Route: 048
     Dates: start: 20080505, end: 20081208

REACTIONS (1)
  - ACUTE MYOCARDIAL INFARCTION [None]
